FAERS Safety Report 4407117-6 (Version None)
Quarter: 2004Q3

REPORT INFORMATION
  Report Type: 
  Country: None (occurrence: None)
  Receive Date: 20040723
  Receipt Date: 20040723
  Transmission Date: 20050211
  Serious: Yes (Other)
  Sender: FDA-Public Use
  Company Number: None

PATIENT
  Age: 55 Year
  Sex: Male
  Weight: 106.6 kg

DRUGS (17)
  1. FLUNISOLIDE [Suspect]
  2. FOSINOPRIL NA [Concomitant]
  3. ASPIRIN [Concomitant]
  4. FLUTICASONE PROPIONATE [Concomitant]
  5. NAPROXEN [Concomitant]
  6. LORATADINE [Concomitant]
  7. ALBUTEROL [Concomitant]
  8. FLUTICAS/SALMETEROL [Concomitant]
  9. PRECISION XTRA (GLUCOSE) TEST STRIP [Concomitant]
  10. OMEPRAZOLE [Concomitant]
  11. FLUOCINONIDE [Concomitant]
  12. . [Concomitant]
  13. FLUOCINONIDE [Concomitant]
  14. METFORMIN HCL [Concomitant]
  15. TRIAMCINOLONE ACETONIDE [Concomitant]
  16. FLUNISOLIDE [Concomitant]
  17. GLIPIZIDE [Concomitant]

REACTIONS (2)
  - NASAL DISCOMFORT [None]
  - THROAT IRRITATION [None]
